FAERS Safety Report 9278841 (Version 1)
Quarter: 2013Q2

REPORT INFORMATION
  Report Type: Spontaneous
  Country: US (occurrence: US)
  Receive Date: 20130508
  Receipt Date: 20130508
  Transmission Date: 20140414
  Serious: No
  Sender: FDA-Public Use
  Company Number: US-ASTRAZENECA-2013SE30009

PATIENT
  Sex: Female

DRUGS (1)
  1. SYMBICORT [Suspect]
     Indication: LUNG DISORDER
     Dosage: UNKNOWN
     Route: 055

REACTIONS (3)
  - Candida infection [Unknown]
  - Wrong technique in drug usage process [Unknown]
  - Intercepted drug prescribing error [Unknown]
